FAERS Safety Report 6076225-9 (Version None)
Quarter: 2009Q1

REPORT INFORMATION
  Report Type: 
  Country: None (occurrence: None)
  Receive Date: 20090210
  Receipt Date: 20090125
  Transmission Date: 20090719
  Serious: Yes (Disabling)
  Sender: FDA-Public Use
  Company Number: OSCN-NO-0901S-0031

PATIENT

DRUGS (2)
  1. OMNISCAN [Suspect]
     Indication: DRUG USE FOR UNKNOWN INDICATION
     Dosage: 30 ML, SINGLE DOSE, I.V.
     Dates: start: 20010530, end: 20010530
  2. DOTAREM [Concomitant]

REACTIONS (5)
  - DRUG INTERACTION [None]
  - NEPHROGENIC SYSTEMIC FIBROSIS [None]
  - PERITONEAL DIALYSIS [None]
  - RESTLESS LEGS SYNDROME [None]
  - SCLERODERMA [None]
